FAERS Safety Report 14236157 (Version 7)
Quarter: 2021Q4

REPORT INFORMATION
  Report Type: Report from Study
  Country: MX (occurrence: MX)
  Receive Date: 20171129
  Receipt Date: 20211009
  Transmission Date: 20220303
  Serious: Yes (Other)
  Sender: FDA-Public Use
  Company Number: PHHY2017MX174977

PATIENT
  Age: 78 Year
  Sex: Female
  Weight: 71 kg

DRUGS (9)
  1. DIOVAN [Suspect]
     Active Substance: VALSARTAN
     Indication: Cardiac disorder
     Dosage: 2 DF, QD (APPROXIMATELY 18 YEARS AGO)
     Route: 048
  2. DIOVAN [Suspect]
     Active Substance: VALSARTAN
     Indication: Hypertension
     Dosage: 2 DF, QD (80 MG) (5 YEARS AGO APPROXIMATELY)
     Route: 048
  3. DIOVAN [Suspect]
     Active Substance: VALSARTAN
     Dosage: 1 DF, BID
     Route: 065
  4. METOPROLOL [Suspect]
     Active Substance: METOPROLOL
     Indication: Hypertension
     Dosage: 0.5 DF, UNK
     Route: 065
  5. METOPROLOL [Suspect]
     Active Substance: METOPROLOL
     Indication: Cardiac disorder
     Dosage: 1 DF, QD (30 MG) (START DATE WAS NOT INDICATED)
     Route: 048
  6. ENALAPRIL [Concomitant]
     Active Substance: ENALAPRIL
     Indication: Hypertension
     Dosage: 2 DF, UNK (APPROXIAMTELY 10 YEARS AGO)
     Route: 065
  7. ENALAPRIL [Concomitant]
     Active Substance: ENALAPRIL
     Indication: Cardiac disorder
     Dosage: 1 DF, BID
     Route: 048
  8. PRAVASTATIN SODIUM [Concomitant]
     Active Substance: PRAVASTATIN SODIUM
     Indication: Blood cholesterol abnormal
     Dosage: 1 DF, QD
     Route: 065
  9. BENZAFIBRATO [Concomitant]
     Indication: Cardiac disorder
     Dosage: 1 DF, QD
     Route: 065

REACTIONS (18)
  - Neoplasm malignant [Unknown]
  - Skin cancer [Unknown]
  - Embolism [Unknown]
  - Limb discomfort [Recovering/Resolving]
  - Herpes virus infection [Unknown]
  - Scab [Unknown]
  - Inflammation [Unknown]
  - Pain [Unknown]
  - Discomfort [Unknown]
  - Skin discolouration [Unknown]
  - Blood pressure increased [Unknown]
  - Blood pressure decreased [Unknown]
  - Hypoacusis [Unknown]
  - Musculoskeletal disorder [Unknown]
  - Insomnia [Unknown]
  - Wrong technique in product usage process [Unknown]
  - Inappropriate schedule of product administration [Not Recovered/Not Resolved]
  - Product use in unapproved indication [Unknown]

NARRATIVE: CASE EVENT DATE: 20171001
